FAERS Safety Report 6137925-5 (Version None)
Quarter: 2009Q1

REPORT INFORMATION
  Report Type: 
  Country: None (occurrence: None)
  Receive Date: 20090331
  Receipt Date: 20090318
  Transmission Date: 20090719
  Serious: Yes (Other)
  Sender: FDA-Public Use
  Company Number: US-PFIZER INC-2009189534

PATIENT
  Sex: Female
  Weight: 53.515 kg

DRUGS (4)
  1. ALPRAZOLAM [Suspect]
     Indication: ANXIETY
     Route: 048
     Dates: start: 20070101
  2. ALPRAZOLAM [Suspect]
     Indication: INSOMNIA
  3. OPHTHALMOLOGICALS [Concomitant]
  4. LISINOPRIL [Concomitant]

REACTIONS (2)
  - GLAUCOMA [None]
  - RED BLOOD CELL COUNT DECREASED [None]
